FAERS Safety Report 4277092-6 (Version None)
Quarter: 2004Q1

REPORT INFORMATION
  Report Type: 
  Country: None (occurrence: None)
  Receive Date: 20040110
  Receipt Date: 20040110
  Transmission Date: 20041129
  Serious: No
  Sender: FDA-Public Use
  Company Number: None

PATIENT
  Sex: Male
  Weight: 71.6683 kg

DRUGS (12)
  1. ACETAMINOPHEN [Suspect]
     Indication: PAIN
     Dosage: 4-16 TABS PER DAY
  2. ALBUTEROL/IPRATROP [Concomitant]
  3. ALBUTEROL/IPRATROP [Concomitant]
  4. CLOTRIMAZOLE [Concomitant]
  5. GUAIFENISIN [Concomitant]
  6. HYDROXYZINE HCL [Concomitant]
  7. LISINOPRIL [Concomitant]
  8. LOVASTATIN [Concomitant]
  9. PREDNISONE [Concomitant]
  10. RANITIDINE HCL [Concomitant]
  11. THEOPHYLLINE (INWOOD) [Concomitant]
  12. TRAZODONE HCL [Concomitant]

REACTIONS (1)
  - OVERDOSE [None]
